FAERS Safety Report 24243360 (Version 1)
Quarter: 2024Q3

REPORT INFORMATION
  Report Type: Report from Study
  Country: TN (occurrence: TN)
  Receive Date: 20240823
  Receipt Date: 20240823
  Transmission Date: 20241017
  Serious: Yes (Hospitalization)
  Sender: JOHNSON AND JOHNSON
  Company Number: GB-JNJFOC-20230806121

PATIENT

DRUGS (1)
  1. RISPERDAL [Suspect]
     Active Substance: RISPERIDONE
     Indication: Product used for unknown indication
     Route: 065

REACTIONS (19)
  - Acute kidney injury [Unknown]
  - Circulatory collapse [Unknown]
  - Pneumonia [Unknown]
  - Pneumonia aspiration [Unknown]
  - Pneumonia [Unknown]
  - Seizure [Unknown]
  - Depressed level of consciousness [Unknown]
  - Rhabdomyolysis [Unknown]
  - Electrocardiogram QT prolonged [Unknown]
  - Toxicity to various agents [Unknown]
  - Overdose [Unknown]
  - Somnolence [Unknown]
  - Extrapyramidal disorder [Unknown]
  - Agitation [Unknown]
  - Tachycardia [Unknown]
  - Bundle branch block right [Unknown]
  - Metabolic acidosis [Unknown]
  - Mydriasis [Unknown]
  - Miosis [Unknown]
